FAERS Safety Report 16953049 (Version 1)
Quarter: 2019Q4

REPORT INFORMATION
  Report Type: Report from Study
  Country: US (occurrence: US)
  Receive Date: 20191023
  Receipt Date: 20191023
  Transmission Date: 20200122
  Serious: Yes (Hospitalization, Other)
  Sender: FDA-Public Use
  Company Number: US-ASTELLAS-2019US041728

PATIENT
  Age: 78 Year
  Sex: Male

DRUGS (1)
  1. ENZALUTAMIDE [Suspect]
     Active Substance: ENZALUTAMIDE
     Indication: PRODUCT USED FOR UNKNOWN INDICATION
     Route: 048
     Dates: start: 201904

REACTIONS (5)
  - Blood glucose decreased [Unknown]
  - Fall [Unknown]
  - Product storage error [Unknown]
  - Hypotension [Unknown]
  - Syncope [Unknown]

NARRATIVE: CASE EVENT DATE: 201904
